FAERS Safety Report 8254574-3 (Version None)
Quarter: 2012Q2

REPORT INFORMATION
  Report Type: 
  Country: None (occurrence: None)
  Receive Date: 20120403
  Receipt Date: 20120329
  Transmission Date: 20120825
  Serious: No
  Sender: FDA-Public Use
  Company Number: US-BIOGENIDEC-2012BI011160

PATIENT
  Age: 40 Year
  Sex: Female

DRUGS (3)
  1. AVONEX [Suspect]
     Indication: MULTIPLE SCLEROSIS
     Route: 030
     Dates: start: 19990901
  2. AVONEX [Suspect]
     Route: 030
     Dates: start: 20090311
  3. AVONEX [Suspect]
     Route: 030
     Dates: start: 20110405, end: 20110731

REACTIONS (2)
  - MULTIPLE SCLEROSIS RELAPSE [None]
  - SENSATION OF PRESSURE [None]
